FAERS Safety Report 23804349 (Version 1)
Quarter: 2024Q2

REPORT INFORMATION
  Report Type: Spontaneous
  Country: US (occurrence: None)
  Receive Date: 20240501
  Receipt Date: 20240501
  Transmission Date: 20240716
  Serious: Yes (Hospitalization)
  Sender: FDA-Public Use
  Company Number: None

PATIENT
  Age: 71 Year
  Sex: Male
  Weight: 104 kg

DRUGS (1)
  1. AVELUMAB [Suspect]
     Active Substance: AVELUMAB
     Dates: end: 20240411

REACTIONS (6)
  - Confusional state [None]
  - Deep vein thrombosis [None]
  - Drug intolerance [None]
  - Haematuria [None]
  - Peripheral venous disease [None]
  - Pelvic venous thrombosis [None]

NARRATIVE: CASE EVENT DATE: 20240416
